FAERS Safety Report 7508707-4 (Version None)
Quarter: 2011Q2

REPORT INFORMATION
  Report Type: 
  Country: None (occurrence: None)
  Receive Date: 20110527
  Receipt Date: 20100816
  Transmission Date: 20111010
  Serious: No
  Sender: FDA-Public Use
  Company Number: A0876123A

PATIENT
  Age: 12 Year
  Sex: Male

DRUGS (1)
  1. VENTOLIN [Suspect]
     Dates: start: 20100814, end: 20100814

REACTIONS (1)
  - CONTUSION [None]
